APPROVED DRUG PRODUCT: HYDROCODONE BITARTRATE AND ACETAMINOPHEN
Active Ingredient: ACETAMINOPHEN; HYDROCODONE BITARTRATE
Strength: 660MG;10MG
Dosage Form/Route: TABLET;ORAL
Application: A040084 | Product #003
Applicant: MALLINCKRODT CHEMICAL INC
Approved: Jul 29, 1996 | RLD: No | RS: No | Type: DISCN